FAERS Safety Report 9034566 (Version 1)
Quarter: 2013Q1

REPORT INFORMATION
  Report Type: Spontaneous
  Country: US (occurrence: US)
  Receive Date: 20130128
  Receipt Date: 20130128
  Transmission Date: 20140127
  Serious: No
  Sender: FDA-Public Use
  Company Number: US-ASTRAZENECA-2013SE00919

PATIENT
  Sex: Female

DRUGS (2)
  1. SYMBICORT [Suspect]
     Dosage: 160/4.5 MCG 2 PUFFS DAILY
     Route: 055
     Dates: start: 20121025
  2. SYMBICORT [Suspect]
     Dosage: 160/4.5 MCG 1 PUFFS ONCE DAILY
     Route: 055

REACTIONS (2)
  - Product quality issue [Unknown]
  - Intentional drug misuse [Unknown]
